FAERS Safety Report 9312630 (Version 1)
Quarter: 2013Q2

REPORT INFORMATION
  Report Type: Spontaneous
  Country: DE (occurrence: DE)
  Receive Date: 20130528
  Receipt Date: 20130528
  Transmission Date: 20140414
  Serious: Yes (Congenital Anomaly)
  Sender: FDA-Public Use
  Company Number: DE-GLAXOSMITHKLINE-D0079923A

PATIENT
  Age: 0 Day
  Sex: Female
  Weight: 2.9 kg

DRUGS (19)
  1. VIANI [Suspect]
     Indication: BRONCHITIS
     Route: 064
  2. FORADIL [Suspect]
     Indication: BRONCHITIS
     Route: 064
  3. MIFLONIDE [Suspect]
     Indication: BRONCHITIS
     Route: 064
  4. PENICILLIN V [Concomitant]
     Indication: BRONCHITIS
     Route: 064
  5. BRONCHIPRET [Concomitant]
     Indication: BRONCHITIS
     Route: 064
  6. CEFUROXIME [Concomitant]
     Indication: BRONCHITIS
     Dosage: 1000MG PER DAY
     Route: 064
  7. SINUPRET FORTE [Concomitant]
     Indication: BRONCHITIS
     Route: 064
  8. L-THYROXIN [Concomitant]
     Indication: HYPOTHYROIDISM
     Dosage: 350MCG PER DAY
     Route: 064
  9. THYBON [Concomitant]
     Indication: HYPOTHYROIDISM
     Dosage: 20MCG PER DAY
     Route: 064
  10. BUSCOPAN [Concomitant]
     Indication: HYDRONEPHROSIS
     Route: 064
  11. TANTUM VERDE [Concomitant]
     Indication: BRONCHITIS
     Route: 064
  12. AMOXICILLIN [Concomitant]
     Indication: VAGINAL INFECTION
     Route: 064
  13. BELOC-ZOK MITE [Concomitant]
     Indication: TACHYCARDIA
     Route: 064
  14. NASICUR [Concomitant]
     Indication: NASOPHARYNGITIS
     Route: 064
  15. RANITIDIN [Concomitant]
     Indication: EPIGASTRIC DISCOMFORT
     Route: 064
  16. OMEPRAZOL [Concomitant]
     Indication: PROPHYLAXIS AGAINST GASTROINTESTINAL ULCER
     Route: 064
  17. FOLIC ACID [Concomitant]
     Indication: PROPHYLAXIS OF NEURAL TUBE DEFECT
     Dosage: 5MG PER DAY
     Route: 064
  18. ACC [Concomitant]
     Indication: BRONCHITIS
     Dosage: 600MG PER DAY
     Route: 064
  19. PENHEXAL [Concomitant]
     Indication: BRONCHITIS
     Route: 064

REACTIONS (2)
  - Haemangioma congenital [Not Recovered/Not Resolved]
  - Foetal exposure during pregnancy [Unknown]
